FAERS Safety Report 4575736-2 (Version None)
Quarter: 2005Q1

REPORT INFORMATION
  Report Type: 
  Country: None (occurrence: None)
  Receive Date: 20050128
  Receipt Date: 20050128
  Transmission Date: 20050727
  Serious: Yes (Disabling)
  Sender: FDA-Public Use
  Company Number: None

PATIENT
  Age: 10 Year
  Sex: Male
  Weight: 40.8237 kg

DRUGS (3)
  1. RISPERDAL [Suspect]
     Indication: SCHIZOAFFECTIVE DISORDER
     Dosage: SEE IMAGE
     Route: 048
     Dates: start: 19990615, end: 20011215
  2. PROZAC [Concomitant]
  3. CONCERTA [Concomitant]

REACTIONS (3)
  - AKATHISIA [None]
  - DEMENTIA [None]
  - TARDIVE DYSKINESIA [None]
